FAERS Safety Report 12546782 (Version 5)
Quarter: 2017Q2

REPORT INFORMATION
  Report Type: Report from Study
  Country: None (occurrence: ES)
  Receive Date: 20160711
  Receipt Date: 20170406
  Transmission Date: 20170830
  Serious: Yes (Life-Threatening, Hospitalization, Other)
  Sender: FDA-Public Use
  Company Number: ES-ABBVIE-16K-144-1668227-00

PATIENT
  Age: 66 Year
  Sex: Female

DRUGS (12)
  1. ROPINIROL [Interacting]
     Active Substance: ROPINIROLE
     Indication: PARKINSON^S DISEASE
  2. DUODOPA [Interacting]
     Active Substance: CARBIDOPA\LEVODOPA
     Dosage: MORNING DOSE: 0 ML, CONTINUOUS DOSE: 4.5 ML, EXTRA DOSE: 4 ML
     Route: 050
     Dates: start: 2016
  3. DUODOPA [Interacting]
     Active Substance: CARBIDOPA\LEVODOPA
     Dosage: MORNING DOSE: 12 ML, CONTINUOUS DOSE: 3.8 ML/H
     Route: 050
     Dates: start: 20160702, end: 20160702
  4. DUODOPA [Interacting]
     Active Substance: CARBIDOPA\LEVODOPA
     Dosage: 2.3 ML FOR PURGING THE PEG AND CD: 2 ML UPTO 2.4ML/H
     Route: 050
     Dates: start: 20160704
  5. DUODOPA [Suspect]
     Active Substance: CARBIDOPA\LEVODOPA
     Indication: PARKINSON^S DISEASE
     Dosage: MORNING DOSE: 12, EXTRA DOSE: 2.5, CONTINUOS DOSE: 3.8 (FOR 16H)
     Route: 050
     Dates: start: 20110926
  6. DUODOPA [Interacting]
     Active Substance: CARBIDOPA\LEVODOPA
     Dosage: MD:0ML, CD:3.9ML DURING DAY, CD:3ML AT NIGHT, ED:2.3ML
     Route: 050
     Dates: start: 20160830
  7. DUODOPA [Interacting]
     Active Substance: CARBIDOPA\LEVODOPA
     Dosage: CONTINUOUS DOSE:3.5 ML/H
     Route: 050
     Dates: start: 20160630, end: 20160701
  8. DUODOPA [Interacting]
     Active Substance: CARBIDOPA\LEVODOPA
     Dosage: CONTINUOS DOSE: 3.9 ML/H
     Route: 050
     Dates: start: 201607
  9. SINEMET [Concomitant]
     Active Substance: CARBIDOPA\LEVODOPA
     Indication: PRODUCT USED FOR UNKNOWN INDICATION
  10. SAFINAMIDE [Suspect]
     Active Substance: SAFINAMIDE
     Indication: PARKINSON^S DISEASE
     Route: 048
     Dates: start: 201605
  11. DUODOPA [Interacting]
     Active Substance: CARBIDOPA\LEVODOPA
     Dosage: MD:12.0 AND 20 MIN LATER, CONTINUOUS DOSE: 3.8 ML/H
     Route: 050
     Dates: start: 20160703, end: 20160703
  12. ROPINIROL [Interacting]
     Active Substance: ROPINIROLE
     Indication: RESTLESS LEGS SYNDROME
     Route: 048
     Dates: start: 20160627, end: 20160702

REACTIONS (16)
  - Pyrexia [Recovered/Resolved]
  - Drug interaction [Recovered/Resolved]
  - Parkinsonism hyperpyrexia syndrome [Recovered/Resolved]
  - Restless legs syndrome [Recovered/Resolved]
  - Contusion [Recovered/Resolved]
  - Dyskinesia [Recovered/Resolved]
  - Blood creatine phosphokinase abnormal [Recovered/Resolved]
  - Confusional state [Recovered/Resolved]
  - Dyskinesia [Recovered/Resolved]
  - Pyrexia [Recovered/Resolved]
  - Parkinsonism hyperpyrexia syndrome [Recovered/Resolved]
  - Chorea [Recovered/Resolved]
  - Vertigo [Recovered/Resolved]
  - On and off phenomenon [Recovered/Resolved]
  - Depressed level of consciousness [Recovered/Resolved]
  - Insomnia [Unknown]

NARRATIVE: CASE EVENT DATE: 2016
